FAERS Safety Report 5021333-4 (Version None)
Quarter: 2006Q2

REPORT INFORMATION
  Report Type: 
  Country: None (occurrence: None)
  Receive Date: 20060608
  Receipt Date: 20050809
  Transmission Date: 20061013
  Serious: No
  Sender: FDA-Public Use
  Company Number: US-BRISTOL-MYERS SQUIBB COMPANY-13067640

PATIENT
  Age: 89 Year
  Sex: Female
  Weight: 61 kg

DRUGS (2)
  1. SINEMET [Suspect]
     Indication: PARKINSON'S DISEASE
     Route: 048
     Dates: start: 19890101
  2. SYNTHROID [Concomitant]

REACTIONS (2)
  - HALLUCINATION [None]
  - LETHARGY [None]
